FAERS Safety Report 9569559 (Version 3)
Quarter: 2014Q2

REPORT INFORMATION
  Report Type: Spontaneous
  Country: US (occurrence: US)
  Receive Date: 20130930
  Receipt Date: 20140602
  Transmission Date: 20141212
  Serious: Yes (Other)
  Sender: FDA-Public Use
  Company Number: US-AMGEN-USASP2013064324

PATIENT
  Age: 61 Year
  Sex: Female

DRUGS (1)
  1. ENBREL [Suspect]
     Indication: RHEUMATOID ARTHRITIS
     Dosage: 50 MG, QWK
     Route: 058
     Dates: start: 20130906, end: 20140429

REACTIONS (11)
  - Lung infection [Recovered/Resolved]
  - Nausea [Unknown]
  - Fatigue [Unknown]
  - Arthritis [Not Recovered/Not Resolved]
  - Anxiety [Unknown]
  - Oral disorder [Unknown]
  - Toothache [Not Recovered/Not Resolved]
  - Eye pain [Not Recovered/Not Resolved]
  - Headache [Not Recovered/Not Resolved]
  - Local swelling [Not Recovered/Not Resolved]
  - Influenza [Recovered/Resolved]
